FAERS Safety Report 19762905 (Version 1)
Quarter: 2021Q3

REPORT INFORMATION
  Report Type: Spontaneous
  Country: US (occurrence: US)
  Receive Date: 20210830
  Receipt Date: 20210830
  Transmission Date: 20211014
  Serious: Yes (Hospitalization)
  Sender: FDA-Public Use
  Company Number: None

PATIENT
  Age: 15 Year
  Sex: Male
  Weight: 44.1 kg

DRUGS (1)
  1. REGEN?COV [Suspect]
     Active Substance: CASIRIVIMAB\IMDEVIMAB
     Indication: SARS-COV-2 TEST POSITIVE
     Route: 058

REACTIONS (5)
  - Pallor [None]
  - Somnolence [None]
  - Unresponsive to stimuli [None]
  - Hyperhidrosis [None]
  - Nasopharyngitis [None]

NARRATIVE: CASE EVENT DATE: 20210829
